FAERS Safety Report 8418837-0 (Version None)
Quarter: 2012Q2

REPORT INFORMATION
  Report Type: 
  Country: None (occurrence: None)
  Receive Date: 20120531
  Receipt Date: 20120517
  Transmission Date: 20120825
  Serious: Yes (Hospitalization)
  Sender: FDA-Public Use
  Company Number: TPA2012A01155

PATIENT
  Age: 78 Year
  Sex: Male

DRUGS (12)
  1. PRAVASTATIN SODIUM [Concomitant]
  2. PRAVACHOL [Concomitant]
  3. MELOXICAM [Concomitant]
  4. LISINOPRIL [Concomitant]
  5. PANTOPRAZOLE SODIUM [Concomitant]
  6. PROTONIX [Concomitant]
  7. FLUTICASONE PROPIONATE [Concomitant]
  8. IBUPROFEN [Concomitant]
  9. ACTOS [Suspect]
     Indication: TYPE 2 DIABETES MELLITUS
     Dosage: 30 MG, 1 IN 1 D,
     Dates: start: 20060901, end: 20111201
  10. SIMVASTATIN [Concomitant]
  11. NASONEX [Concomitant]
  12. CADUET [Concomitant]

REACTIONS (6)
  - ACUTE PRERENAL FAILURE [None]
  - DEHYDRATION [None]
  - URINARY TRACT INFECTION [None]
  - URETHRAL CANCER METASTATIC [None]
  - PROSTATE CANCER [None]
  - BLADDER TRANSITIONAL CELL CARCINOMA [None]
